FAERS Safety Report 5703707-9 (Version None)
Quarter: 2008Q2

REPORT INFORMATION
  Report Type: 
  Country: None (occurrence: None)
  Receive Date: 20080413
  Receipt Date: 20080404
  Transmission Date: 20081010
  Serious: Yes (Other)
  Sender: FDA-Public Use
  Company Number: PHHY2008JP03636

PATIENT
  Age: 83 Year
  Sex: Male
  Weight: 51 kg

DRUGS (3)
  1. AMOXICILLIN [Concomitant]
  2. DALACIN [Concomitant]
  3. ZOMETA [Suspect]
     Indication: MULTIPLE MYELOMA
     Dosage: 4 MG, QMO
     Route: 042
     Dates: start: 20060703

REACTIONS (13)
  - ABSCESS MANAGEMENT [None]
  - ABSCESS ORAL [None]
  - BONE DISORDER [None]
  - EXCESSIVE GRANULATION TISSUE [None]
  - GINGIVITIS [None]
  - INFECTION [None]
  - MOUTH ULCERATION [None]
  - ORAL DISCHARGE [None]
  - ORAL PAIN [None]
  - OSTEOMYELITIS [None]
  - PRIMARY SEQUESTRUM [None]
  - SWELLING [None]
  - TENDERNESS [None]
